FAERS Safety Report 18431788 (Version 2)
Quarter: 2020Q4

REPORT INFORMATION
  Report Type: Spontaneous
  Country: KR (occurrence: KR)
  Receive Date: 20201027
  Receipt Date: 20201106
  Transmission Date: 20210114
  Serious: Yes (Hospitalization)
  Sender: FDA-Public Use
  Company Number: KR-MACLEODS PHARMACEUTICALS US LTD-MAC2020028808

PATIENT

DRUGS (2)
  1. CHOLINE ALFOSCERATE [Concomitant]
     Active Substance: CHOLINE ALFOSCERATE
     Indication: PRODUCT USED FOR UNKNOWN INDICATION
     Dosage: 400 MILLIGRAM, BID
     Route: 065
  2. DONEPEZIL. [Suspect]
     Active Substance: DONEPEZIL
     Indication: DEMENTIA ALZHEIMER^S TYPE
     Dosage: 5 MILLIGRAM, QD (ARICEPT EVESS)
     Route: 048

REACTIONS (6)
  - Pneumonia [Recovered/Resolved]
  - Hypoaldosteronism [Unknown]
  - Blood pressure increased [Recovered/Resolved]
  - Potassium wasting nephropathy [Recovering/Resolving]
  - Metabolic alkalosis [Unknown]
  - Hypokalaemia [Recovered/Resolved]
